FAERS Safety Report 5072379-1 (Version None)
Quarter: 2006Q3

REPORT INFORMATION
  Report Type: 
  Country: None (occurrence: None)
  Receive Date: 20060710
  Receipt Date: 20060504
  Transmission Date: 20061208
  Serious: Yes (Other)
  Sender: FDA-Public Use
  Company Number: PROG00206001494

PATIENT
  Age: 32 Year
  Sex: Female
  Weight: 77 kg

DRUGS (2)
  1. PROMETRIUM [Suspect]
     Indication: HAEMORRHAGE
     Dosage: 200 MILLIGRAM(S) BID ORAL DAILY DOSE: 400 MILLIGRAM(S)
     Route: 048
     Dates: start: 20050801, end: 20050801
  2. PROMETRIUM [Suspect]
     Indication: PREGNANCY
     Dosage: 200 MILLIGRAM(S) BID ORAL DAILY DOSE: 400 MILLIGRAM(S)
     Route: 048
     Dates: start: 20050801, end: 20050801

REACTIONS (1)
  - ABORTION SPONTANEOUS [None]
